FAERS Safety Report 9330198 (Version 1)
Quarter: 2013Q2

REPORT INFORMATION
  Report Type: Spontaneous
  Country: US (occurrence: US)
  Receive Date: 20130604
  Receipt Date: 20130604
  Transmission Date: 20140414
  Serious: Yes (Other)
  Sender: FDA-Public Use
  Company Number: US-ASTRAZENECA-2013SE37762

PATIENT
  Age: 78 Year
  Sex: Male

DRUGS (4)
  1. ATENOLOL [Suspect]
     Route: 065
  2. CRESTOR [Suspect]
     Indication: BLOOD CHOLESTEROL
     Route: 048
     Dates: start: 20130308, end: 20130323
  3. GLIPIZIDE [Concomitant]
  4. PLAVIX [Concomitant]

REACTIONS (2)
  - Coronary artery occlusion [Unknown]
  - Nocturia [Not Recovered/Not Resolved]
